FAERS Safety Report 7481752-3 (Version None)
Quarter: 2011Q2

REPORT INFORMATION
  Report Type: 
  Country: None (occurrence: None)
  Receive Date: 20110516
  Receipt Date: 20110511
  Transmission Date: 20111010
  Serious: Yes (Hospitalization)
  Sender: FDA-Public Use
  Company Number: B0715276A

PATIENT
  Sex: Male

DRUGS (2)
  1. PROMACTA [Suspect]
     Dosage: 37.5MG PER DAY
     Route: 048
  2. UNKNOWN DRUG [Concomitant]
     Route: 048

REACTIONS (1)
  - CEREBRAL INFARCTION [None]
